FAERS Safety Report 7252085-5 (Version None)
Quarter: 2011Q1

REPORT INFORMATION
  Report Type: 
  Country: None (occurrence: None)
  Receive Date: 20110128
  Receipt Date: 20100428
  Transmission Date: 20110831
  Serious: No
  Sender: FDA-Public Use
  Company Number: US-ABBOTT-10P-163-0641739-00

PATIENT
  Sex: Female
  Weight: 104.42 kg

DRUGS (3)
  1. METHOTREXATE [Concomitant]
     Indication: RHEUMATOID ARTHRITIS
     Route: 048
  2. HUMIRA [Suspect]
     Indication: RHEUMATOID ARTHRITIS
     Route: 058
     Dates: start: 20070101, end: 20100101
  3. HUMIRA [Suspect]
     Route: 058
     Dates: start: 20100301

REACTIONS (2)
  - ONYCHOMADESIS [None]
  - NAIL BED INFECTION [None]
